FAERS Safety Report 6257129-5 (Version None)
Quarter: 2009Q3

REPORT INFORMATION
  Report Type: 
  Country: None (occurrence: None)
  Receive Date: 20090706
  Receipt Date: 20090626
  Transmission Date: 20100115
  Serious: Yes (Death, Hospitalization)
  Sender: FDA-Public Use
  Company Number: B0582072A

PATIENT
  Age: 30 Year
  Sex: Male
  Weight: 84.1 kg

DRUGS (1)
  1. ADVAIR HFA [Suspect]
     Indication: DRUG USE FOR UNKNOWN INDICATION

REACTIONS (7)
  - ASPIRATION [None]
  - CARDIAC ARREST [None]
  - CHOKING [None]
  - CIRCULATORY COLLAPSE [None]
  - CYANOSIS [None]
  - LIVEDO RETICULARIS [None]
  - VOMITING [None]
